FAERS Safety Report 5219932-X (Version None)
Quarter: 2007Q1

REPORT INFORMATION
  Report Type: 
  Country: None (occurrence: None)
  Receive Date: 20070125
  Receipt Date: 20070115
  Transmission Date: 20070707
  Serious: Yes (Hospitalization)
  Sender: FDA-Public Use
  Company Number: BR-ABBOTT-06P-020-0351467-00

PATIENT
  Sex: Female

DRUGS (2)
  1. HUMIRA [Suspect]
     Indication: RHEUMATOID ARTHRITIS
     Route: 058
     Dates: start: 20060101
  2. UNSPECIFIED MEDICATION [Concomitant]
     Indication: HYPERTENSION

REACTIONS (3)
  - CALCULUS BLADDER [None]
  - INTESTINAL PERFORATION [None]
  - UMBILICAL HERNIA [None]
